FAERS Safety Report 18038940 (Version 10)
Quarter: 2020Q4

REPORT INFORMATION
  Report Type: Report from Study
  Country: None (occurrence: US)
  Receive Date: 20200718
  Receipt Date: 20201215
  Transmission Date: 20210113
  Serious: Yes (Hospitalization, Other)
  Sender: FDA-Public Use
  Company Number: US-ABBVIE-20K-163-3442787-00

PATIENT
  Age: 56 Year
  Sex: Female
  Weight: 90.8 kg

DRUGS (4)
  1. HUMIRA [Suspect]
     Active Substance: ADALIMUMAB
     Indication: ANKYLOSING SPONDYLITIS
     Dosage: CITRATE FREE
     Route: 058
     Dates: start: 201909, end: 20200302
  2. TYLENOL [Concomitant]
     Active Substance: ACETAMINOPHEN
     Indication: ARTHRALGIA
  3. HUMIRA [Suspect]
     Active Substance: ADALIMUMAB
     Dosage: CITRATE FREE
     Route: 058
     Dates: start: 20200712
  4. LISINOPRIL HCTZ [Concomitant]
     Active Substance: HYDROCHLOROTHIAZIDE\LISINOPRIL
     Indication: HYPERTENSION

REACTIONS (27)
  - Loss of personal independence in daily activities [Unknown]
  - Injection site papule [Unknown]
  - Pain [Not Recovered/Not Resolved]
  - Incorrect dose administered [Recovered/Resolved]
  - Shoulder arthroplasty [Recovered/Resolved]
  - Chondropathy [Unknown]
  - Musculoskeletal stiffness [Unknown]
  - Wrong technique in product usage process [Recovered/Resolved]
  - Joint swelling [Unknown]
  - General physical health deterioration [Unknown]
  - Arthralgia [Unknown]
  - Back pain [Unknown]
  - Arthropathy [Recovering/Resolving]
  - Injection site papule [Recovered/Resolved]
  - Pain in extremity [Unknown]
  - Neck pain [Unknown]
  - Rotator cuff syndrome [Recovering/Resolving]
  - Paraesthesia [Unknown]
  - Fatigue [Unknown]
  - Blood cholesterol [Not Recovered/Not Resolved]
  - Dry eye [Unknown]
  - Joint range of motion decreased [Not Recovered/Not Resolved]
  - Mobility decreased [Not Recovered/Not Resolved]
  - Impaired work ability [Unknown]
  - Discomfort [Not Recovered/Not Resolved]
  - Peripheral swelling [Not Recovered/Not Resolved]
  - Injection site haemorrhage [Unknown]

NARRATIVE: CASE EVENT DATE: 2019
